FAERS Safety Report 20112038 (Version 2)
Quarter: 2021Q4

REPORT INFORMATION
  Report Type: Spontaneous
  Country: US (occurrence: US)
  Receive Date: 20211125
  Receipt Date: 20211207
  Transmission Date: 20220303
  Serious: Yes (Other)
  Sender: FDA-Public Use
  Company Number: US-SANOFI-00858024

PATIENT
  Age: 85 Year
  Sex: Female

DRUGS (1)
  1. ASPERCREME WITH LIDOCAINE [Suspect]
     Active Substance: LIDOCAINE
     Dosage: UNK

REACTIONS (3)
  - Choking [Unknown]
  - Sneezing [Unknown]
  - Sinus disorder [Unknown]
